FAERS Safety Report 11595621 (Version 1)
Quarter: 2015Q4

REPORT INFORMATION
  Report Type: Other
  Country: US (occurrence: US)
  Receive Date: 20151006
  Receipt Date: 20151006
  Transmission Date: 20160304
  Serious: Yes (Hospitalization)
  Sender: FDA-Public Use
  Company Number: US-ENDO PHARMACEUTICALS INC-2015-003138

PATIENT
  Age: 36 Year
  Sex: Male

DRUGS (5)
  1. TELMISARTAN AND HYDROCHLOROTHIAZIDE 80MG/25MG TABLETS [Concomitant]
     Indication: HYPERTENSION
     Dosage: 80/25MG
     Route: 048
  2. LOSARTAN POTASSIUM TABLETS 25MG [Concomitant]
     Indication: HYPERTENSION
     Route: 048
  3. NAPROXEN TABLETS [Concomitant]
     Active Substance: NAPROXEN
     Indication: MIGRAINE
     Route: 048
  4. HYDROCHLOROTHIAZIDE TABLETS 25 MG [Concomitant]
     Indication: HYPERTENSION
     Route: 048
  5. AMITRIPTYLINE HCL 10MG [Suspect]
     Active Substance: AMITRIPTYLINE
     Indication: MIGRAINE
     Route: 048

REACTIONS (1)
  - Pseudophaeochromocytoma [Recovered/Resolved]
